FAERS Safety Report 24988626 (Version 1)
Quarter: 2025Q1

REPORT INFORMATION
  Report Type: Report from Study
  Country: US (occurrence: US)
  Receive Date: 20250220
  Receipt Date: 20250220
  Transmission Date: 20250409
  Serious: Yes (Death, Other)
  Sender: ACADIA PHARMACEUTICALS
  Company Number: US-ACADIA PHARMACEUTICALS INC.-ACA-2025-PIM-001665

PATIENT
  Sex: Male

DRUGS (15)
  1. NUPLAZID [Suspect]
     Active Substance: PIMAVANSERIN TARTRATE
     Indication: Parkinson^s disease
     Dosage: 34 MILLIGRAM, QD
     Route: 048
  2. ATORVASTATIN [Concomitant]
     Active Substance: ATORVASTATIN
  3. FINASTERIDE [Concomitant]
     Active Substance: FINASTERIDE
  4. ASPIRIN [Concomitant]
     Active Substance: ASPIRIN
  5. PYRIDOSTIGMINE BROMIDE [Concomitant]
     Active Substance: PYRIDOSTIGMINE BROMIDE
  6. FLUDROCORTISONE [Concomitant]
     Active Substance: FLUDROCORTISONE
  7. MIDODRINE [Concomitant]
     Active Substance: MIDODRINE
  8. ALLOPURINOL [Concomitant]
     Active Substance: ALLOPURINOL
  9. QUETIAPINE FUMARATE [Concomitant]
     Active Substance: QUETIAPINE FUMARATE
  10. GABAPENTIN [Concomitant]
     Active Substance: GABAPENTIN
  11. LACOSAMIDE [Concomitant]
     Active Substance: LACOSAMIDE
  12. DONEPEZIL [Concomitant]
     Active Substance: DONEPEZIL
  13. TAMSULOSIN [Concomitant]
     Active Substance: TAMSULOSIN
  14. CARBIDOPA LEVODOPA [Concomitant]
     Active Substance: CARBIDOPA\LEVODOPA
  15. CYANOCOBALAMIN [Concomitant]
     Active Substance: CYANOCOBALAMIN

REACTIONS (1)
  - Death [Fatal]
